FAERS Safety Report 8818585 (Version 1)
Quarter: 2012Q4

REPORT INFORMATION
  Report Type: 
  Country: US (occurrence: US)
  Receive Date: 20121002
  Receipt Date: 20121002
  Transmission Date: 20130627
  Serious: No
  Sender: FDA-Public Use
  Company Number: US-COVIDIEN/TYCO HEALTHCARE/MALLINCKRODT-T201200534

PATIENT
  Age: 49 Year
  Sex: Female

DRUGS (1)
  1. EXALGO EXTENDED RELEASE [Suspect]
     Dosage: 12 mg, UNK

REACTIONS (3)
  - Urticaria [Recovered/Resolved]
  - Tremor [Recovered/Resolved]
  - Dry mouth [Recovered/Resolved]
